FAERS Safety Report 8367774-9 (Version None)
Quarter: 2012Q2

REPORT INFORMATION
  Report Type: 
  Country: None (occurrence: None)
  Receive Date: 20120517
  Receipt Date: 20120509
  Transmission Date: 20120825
  Serious: Yes (Other)
  Sender: FDA-Public Use
  Company Number: US-ROCHE-1067418

PATIENT
  Age: 62 Year
  Sex: Female
  Weight: 67.3 kg

DRUGS (4)
  1. HERCEPTIN [Suspect]
     Indication: BREAST CANCER METASTATIC
     Dates: start: 20111103, end: 20120503
  2. AVASTIN [Suspect]
     Indication: BREAST CANCER METASTATIC
     Dates: start: 20111027
  3. LISINOPRIL [Concomitant]
     Indication: HYPERTENSION
  4. CARBOPLATIN [Suspect]
     Indication: BREAST CANCER METASTATIC
     Dosage: 4 AUC
     Dates: start: 20111103

REACTIONS (2)
  - BLINDNESS UNILATERAL [None]
  - FATIGUE [None]
